FAERS Safety Report 9159128 (Version 1)
Quarter: 2013Q1

REPORT INFORMATION
  Report Type: Spontaneous
  Country: US (occurrence: None)
  Receive Date: 20130212
  Receipt Date: 20130212
  Transmission Date: 20140127
  Serious: Yes (Hospitalization)
  Sender: FDA-Public Use
  Company Number: TPA2013A01280

PATIENT
  Sex: Male

DRUGS (1)
  1. DEXILANT [Suspect]
     Indication: GASTROOESOPHAGEAL REFLUX DISEASE
     Route: 048
     Dates: start: 20121121, end: 20121126

REACTIONS (7)
  - Palpitations [None]
  - Vision blurred [None]
  - Rash [None]
  - Anaemia [None]
  - Hypocalcaemia [None]
  - Renal impairment [None]
  - Dialysis [None]
